FAERS Safety Report 6837387-6 (Version None)
Quarter: 2010Q3

REPORT INFORMATION
  Report Type: 
  Country: None (occurrence: None)
  Receive Date: 20100713
  Receipt Date: 20070512
  Transmission Date: 20110219
  Serious: No
  Sender: FDA-Public Use
  Company Number: US-PFIZER INC-2007039205

PATIENT
  Sex: Female

DRUGS (6)
  1. CHANTIX [Suspect]
     Indication: SMOKING CESSATION THERAPY
     Dates: start: 20070301, end: 20070401
  2. SEROQUEL [Interacting]
     Indication: BIPOLAR DISORDER
  3. SEROQUEL [Interacting]
     Indication: FEELING OF RELAXATION
  4. SEROQUEL [Interacting]
     Indication: SLEEP DISORDER
  5. LITHOBID [Concomitant]
     Indication: BIPOLAR DISORDER
  6. TRILEPTAL [Concomitant]
     Indication: BIPOLAR DISORDER

REACTIONS (4)
  - DRUG INEFFECTIVE [None]
  - DRUG INTERACTION [None]
  - FATIGUE [None]
  - NAUSEA [None]
